FAERS Safety Report 8367158-3 (Version None)
Quarter: 2012Q1

REPORT INFORMATION
  Report Type: 
  Country: None (occurrence: None)
  Receive Date: 20120323
  Receipt Date: 20110819
  Transmission Date: 20120608
  Serious: Yes (Other)
  Sender: FDA-Public Use
  Company Number: 163-21880-11072552

PATIENT
  Age: 59 Year
  Sex: Female

DRUGS (6)
  1. HYDROCHLOROTHIAZIDE [Concomitant]
  2. REVLIMID [Suspect]
     Indication: MYELODYSPLASTIC SYNDROME
     Dosage: 10 MG, QHS X 28 DAYS, PO
     Route: 048
     Dates: start: 20110714, end: 20110719
  3. WARFARIN SODIUM [Concomitant]
  4. XANAX [Concomitant]
  5. CLONIDINE [Concomitant]
  6. NEURONTIN [Concomitant]

REACTIONS (1)
  - HYPERSENSITIVITY [None]
